FAERS Safety Report 7762256-7 (Version None)
Quarter: 2011Q3

REPORT INFORMATION
  Report Type: 
  Country: None (occurrence: None)
  Receive Date: 20110920
  Receipt Date: 20110112
  Transmission Date: 20111222
  Serious: Yes (Other)
  Sender: FDA-Public Use
  Company Number: JP-ROCHE-755107

PATIENT
  Sex: Female
  Weight: 16 kg

DRUGS (1)
  1. TAMIFLU [Suspect]
     Indication: INFLUENZA
     Dosage: TAMIFLU DRY SYRUP 3 %
     Route: 048
     Dates: start: 20101218, end: 20101218

REACTIONS (2)
  - AGITATION [None]
  - MUSCLE SPASMS [None]
